FAERS Safety Report 12236585 (Version 1)
Quarter: 2016Q2

REPORT INFORMATION
  Report Type: Spontaneous
  Country: DE (occurrence: DE)
  Receive Date: 20160405
  Receipt Date: 20160405
  Transmission Date: 20160815
  Serious: Yes (Congenital Anomaly, Other)
  Sender: FDA-Public Use
  Company Number: DE-AUROBINDO-AUR-APL-2016-03004

PATIENT
  Age: 1 Day
  Sex: Male
  Weight: 2.47 kg

DRUGS (3)
  1. NEBIVOLOL. [Suspect]
     Active Substance: NEBIVOLOL
     Indication: TACHYCARDIA
     Dosage: 5 MG, DAILY
     Route: 064
  2. METOPROLOL. [Suspect]
     Active Substance: METOPROLOL
     Indication: TACHYCARDIA
     Dosage: 47.5 MG, DAILY
     Route: 064
  3. DOPEGYT [Suspect]
     Active Substance: METHYLDOPA
     Indication: HYPERTENSION
     Dosage: 2000 MG, DAILY
     Route: 064

REACTIONS (7)
  - Exposure during pregnancy [Unknown]
  - Aneurysm [Unknown]
  - Hypoglycaemia neonatal [Recovered/Resolved]
  - Small for dates baby [Unknown]
  - Selective eating disorder [Unknown]
  - Neonatal tachycardia [Unknown]
  - Hypospadias [Not Recovered/Not Resolved]

NARRATIVE: CASE EVENT DATE: 20150907
